FAERS Safety Report 25239710 (Version 1)
Quarter: 2025Q2

REPORT INFORMATION
  Report Type: Spontaneous
  Country: US (occurrence: None)
  Receive Date: 20250424
  Receipt Date: 20250424
  Transmission Date: 20250716
  Serious: Yes (Disabling)
  Sender: FDA-CTU
  Company Number: None

PATIENT
  Age: 54 Year
  Sex: Female
  Weight: 76.95 kg

DRUGS (18)
  1. VRAYLAR [Suspect]
     Active Substance: CARIPRAZINE
     Indication: Bipolar I disorder
  2. MODAFINIL [Concomitant]
     Active Substance: MODAFINIL
  3. DULOXETINE [Concomitant]
     Active Substance: DULOXETINE
  4. PROPRANOLOL HYDROCHLORIDE [Concomitant]
     Active Substance: PROPRANOLOL HYDROCHLORIDE
  5. Desalortadine [Concomitant]
  6. PAROXETINE [Concomitant]
     Active Substance: PAROXETINE
  7. AIMOVIG [Concomitant]
     Active Substance: ERENUMAB-AOOE
  8. HYDROXYCHLOROQUINE [Concomitant]
     Active Substance: HYDROXYCHLOROQUINE
  9. VRAYLAR [Concomitant]
     Active Substance: CARIPRAZINE
  10. Lamcital [Concomitant]
  11. BACLOFEN [Concomitant]
     Active Substance: BACLOFEN
  12. ATIVAN [Concomitant]
     Active Substance: LORAZEPAM
  13. MELATONIN [Concomitant]
     Active Substance: MELATONIN
  14. MIRALAX [Concomitant]
     Active Substance: POLYETHYLENE GLYCOL 3350
  15. Inspire Sleep Apnea device implant [Concomitant]
  16. MELATONIN [Concomitant]
     Active Substance: MELATONIN
  17. VITAMIN D NOS [Concomitant]
     Active Substance: CHOLECALCIFEROL\ERGOCALCIFEROL
  18. POLYETHYLENE GLYCOL [Concomitant]
     Active Substance: POLYETHYLENE GLYCOL

REACTIONS (2)
  - Hyperhidrosis [None]
  - Feeling hot [None]

NARRATIVE: CASE EVENT DATE: 20250424
